FAERS Safety Report 8462191 (Version 3)
Quarter: 2012Q4

REPORT INFORMATION
  Report Type: 
  Country: US (occurrence: US)
  Receive Date: 20120315
  Receipt Date: 20121003
  Transmission Date: 20130627
  Serious: Yes (Hospitalization)
  Sender: FDA-Public Use
  Company Number: US-ASTRAZENECA-2012SE16329

PATIENT
  Age: 54 Year
  Sex: Female
  Weight: 63.5 kg

DRUGS (3)
  1. SEROQUEL [Suspect]
     Indication: BIPOLAR DISORDER
     Route: 048
     Dates: start: 2010
  2. RISPERIDONE [Concomitant]
     Indication: BIPOLAR DISORDER
     Route: 048
  3. PROZAC [Concomitant]
     Indication: BIPOLAR DISORDER
     Route: 048

REACTIONS (3)
  - Psychotic disorder [Recovered/Resolved]
  - Abnormal behaviour [Unknown]
  - Drug dose omission [Unknown]
